FAERS Safety Report 23090874 (Version 1)
Quarter: 2023Q4

REPORT INFORMATION
  Report Type: Spontaneous
  Country: GB (occurrence: GB)
  Receive Date: 20231020
  Receipt Date: 20231020
  Transmission Date: 20240110
  Serious: Yes (Other)
  Sender: FDA-Public Use
  Company Number: GB-SUN PHARMACEUTICAL INDUSTRIES LTD-2023R1-414108

PATIENT
  Age: 63 Year
  Sex: Male

DRUGS (2)
  1. ASPIRIN [Suspect]
     Active Substance: ASPIRIN
     Indication: Coronary angioplasty
     Dosage: 75 MILLIGRAM, DAILY
     Route: 065
  2. TICAGRELOR [Suspect]
     Active Substance: TICAGRELOR
     Indication: Coronary angioplasty
     Dosage: 90 MILLIGRAM, BID
     Route: 065

REACTIONS (2)
  - Blindness [Unknown]
  - Refractoriness to platelet transfusion [Unknown]
